FAERS Safety Report 9032501 (Version 1)
Quarter: 2013Q1

REPORT INFORMATION
  Report Type: Spontaneous
  Country: GB (occurrence: GB)
  Receive Date: 20130125
  Receipt Date: 20130125
  Transmission Date: 20140127
  Serious: Yes (Other)
  Sender: FDA-Public Use
  Company Number: GB-ROCHE-1182902

PATIENT
  Age: 58 Year
  Sex: Male

DRUGS (4)
  1. LUCENTIS [Suspect]
     Indication: DIABETIC RETINAL OEDEMA
     Route: 050
     Dates: start: 20120907
  2. LUCENTIS [Suspect]
     Route: 050
     Dates: start: 20121011
  3. INSULIN [Concomitant]
  4. ASTHMAHALER [Concomitant]

REACTIONS (4)
  - Macular oedema [Unknown]
  - Photophobia [Recovered/Resolved]
  - Corneal abrasion [Unknown]
  - Eye inflammation [Unknown]
